FAERS Safety Report 5011938-9 (Version None)
Quarter: 2006Q2

REPORT INFORMATION
  Report Type: 
  Country: None (occurrence: None)
  Receive Date: 20060526
  Receipt Date: 20060427
  Transmission Date: 20061013
  Serious: Yes (Hospitalization)
  Sender: FDA-Public Use
  Company Number: US-ROCHE-446236

PATIENT
  Age: 43 Year
  Sex: Male
  Weight: 62.6 kg

DRUGS (7)
  1. PEG-INTERFERON ALFA 2A (RO 25-8310) [Suspect]
     Indication: HEPATITIS C VIRUS
     Route: 058
     Dates: start: 20050726
  2. RIBAVIRIN [Suspect]
     Indication: HEPATITIS C VIRUS
     Route: 048
     Dates: start: 20050726
  3. EPOGEN [Suspect]
     Dosage: FORM = INJECTION
     Route: 058
     Dates: start: 20051202
  4. TRAZODONE HCL [Suspect]
     Indication: DEPRESSION
     Route: 065
     Dates: start: 20050926, end: 20060306
  5. TRAZODONE HCL [Suspect]
     Route: 065
     Dates: start: 20060307
  6. VIRAMUNE [Concomitant]
     Dosage: APPROXIMATELY DURATION OF USE SEVERAL YEARS
  7. TRUVADA [Concomitant]
     Dosage: APPROXIMATELY DURATION OF USE 14 DAYS

REACTIONS (1)
  - CEREBROVASCULAR ACCIDENT [None]
